FAERS Safety Report 16053200 (Version 1)
Quarter: 2019Q1

REPORT INFORMATION
  Report Type: Spontaneous
  Country: FR (occurrence: FR)
  Receive Date: 20190308
  Receipt Date: 20190308
  Transmission Date: 20190418
  Serious: Yes (Hospitalization)
  Sender: FDA-Public Use
  Company Number: FR-MYLANLABS-2019M1021077

PATIENT
  Age: 54 Year
  Sex: Male
  Weight: 100 kg

DRUGS (2)
  1. ETOPOSIDE TEVA [Suspect]
     Active Substance: ETOPOSIDE
     Indication: TESTIS CANCER
     Dosage: 1000 MILLIGRAM, CYCLE, 200 MG DE J1 ? J5/CURE
     Route: 042
     Dates: start: 20180507, end: 20180702
  2. CISPLATIN MYLAN [Suspect]
     Active Substance: CISPLATIN
     Indication: TESTIS CANCER
     Dosage: 200 MILLIGRAM, CYCLE, 40 MG DE J1 ? J5 /CURE
     Route: 042
     Dates: start: 20180507, end: 20180702

REACTIONS (1)
  - Neutropenic colitis [Not Recovered/Not Resolved]

NARRATIVE: CASE EVENT DATE: 20180702
